FAERS Safety Report 6986344-8 (Version None)
Quarter: 2010Q3

REPORT INFORMATION
  Report Type: 
  Country: None (occurrence: None)
  Receive Date: 20100910
  Receipt Date: 20100826
  Transmission Date: 20110219
  Serious: Yes (Life-Threatening, Hospitalization)
  Sender: FDA-Public Use
  Company Number: AUR-APL-2010-01799

PATIENT
  Age: 75 Year
  Sex: Male

DRUGS (5)
  1. METOPROLOL TARTRATE [Suspect]
     Indication: CARDIAC FAILURE
     Dosage: 100MG, DAILY, D/C'D UPON ADMIT
  2. RAMIPRIL [Suspect]
     Indication: CARDIAC FAILURE
     Dosage: 10MG, DAILY,  D/C' D UPON ADMIT
  3. SPIRONOLACTONE [Suspect]
     Indication: CARDIAC FAILURE
     Dosage: 25MG - DAILY   ; D/C'D UPON ADMIT
  4. DIGITOXIN 50MCG [Concomitant]
  5. BUMETANIDE 1.5MG [Concomitant]

REACTIONS (15)
  - ACIDOSIS [None]
  - BRADYCARDIA [None]
  - CARDIAC FAILURE [None]
  - CARDIAC OUTPUT DECREASED [None]
  - CARDIOGENIC SHOCK [None]
  - DRUG INTERACTION [None]
  - EJECTION FRACTION DECREASED [None]
  - HAEMODIALYSIS [None]
  - HYPERKALAEMIA [None]
  - HYPOPHAGIA [None]
  - HYPOTENSION [None]
  - HYPOVOLAEMIA [None]
  - METABOLIC ACIDOSIS [None]
  - MITRAL VALVE INCOMPETENCE [None]
  - RENAL FAILURE ACUTE [None]
